FAERS Safety Report 5971465-9 (Version None)
Quarter: 2008Q4

REPORT INFORMATION
  Report Type: 
  Country: None (occurrence: None)
  Receive Date: 20081201
  Receipt Date: 20081119
  Transmission Date: 20090506
  Serious: Yes (Hospitalization, Other)
  Sender: FDA-Public Use
  Company Number: CA-JNJFOC-20080903268

PATIENT
  Sex: Female
  Weight: 144 kg

DRUGS (2)
  1. REMICADE [Suspect]
     Dosage: 8TH INFUSION
     Route: 042
  2. REMICADE [Suspect]
     Indication: RHEUMATOID ARTHRITIS
     Route: 042

REACTIONS (6)
  - ABDOMINAL DISCOMFORT [None]
  - BLOOD URINE PRESENT [None]
  - CONFUSIONAL STATE [None]
  - DYSURIA [None]
  - LISTERIOSIS [None]
  - PYREXIA [None]
